FAERS Safety Report 23726691 (Version 1)
Quarter: 2024Q2

REPORT INFORMATION
  Report Type: Spontaneous
  Country: US (occurrence: US)
  Receive Date: 20240410
  Receipt Date: 20240410
  Transmission Date: 20240716
  Serious: Yes (Hospitalization)
  Sender: FDA-Public Use
  Company Number: US-CHEPLA-2024004290

PATIENT
  Age: 83 Year
  Sex: Female

DRUGS (4)
  1. CAPECITABINE [Suspect]
     Active Substance: CAPECITABINE
     Indication: Product used for unknown indication
     Route: 048
     Dates: start: 202401
  2. CAPECITABINE [Suspect]
     Active Substance: CAPECITABINE
     Indication: Product used for unknown indication
     Dosage: SHE WAS RESTARTING BOTH MEDICATIONS NOW AT HALF DOSE OF TUKYSA AND XELODA
     Route: 048
  3. TUKYSA [Suspect]
     Active Substance: TUCATINIB
     Indication: Product used for unknown indication
     Route: 048
     Dates: start: 202401
  4. TUKYSA [Suspect]
     Active Substance: TUCATINIB
     Indication: Product used for unknown indication
     Dosage: SHE WAS RESTARTING BOTH MEDICATIONS NOW AT HALF DOSE OF TUKYSA AND XELODA
     Route: 048

REACTIONS (3)
  - Diarrhoea [Unknown]
  - Rash [Unknown]
  - Dermatitis acneiform [Unknown]
